FAERS Safety Report 8503231-4 (Version None)
Quarter: 2012Q3

REPORT INFORMATION
  Report Type: 
  Country: None (occurrence: None)
  Receive Date: 20120711
  Receipt Date: 20120706
  Transmission Date: 20120928
  Serious: No
  Sender: FDA-Public Use
  Company Number: US-PFIZER INC-2012162452

PATIENT
  Age: 42 Year
  Sex: Male

DRUGS (1)
  1. LYRICA [Suspect]
     Indication: ANXIETY DISORDER
     Dosage: 3 WEEKS 100 MG, 3X/DAY

REACTIONS (5)
  - THERAPEUTIC RESPONSE UNEXPECTED [None]
  - FEELING ABNORMAL [None]
  - EUPHORIC MOOD [None]
  - INCREASED APPETITE [None]
  - LIBIDO INCREASED [None]
